FAERS Safety Report 8785216 (Version 2)
Quarter: 2012Q4

REPORT INFORMATION
  Report Type: 
  Country: FR (occurrence: FR)
  Receive Date: 20120914
  Receipt Date: 20120924
  Transmission Date: 20130627
  Serious: Yes (Hospitalization)
  Sender: FDA-Public Use
  Company Number: FR-JNJFOC-20120904095

PATIENT
  Age: 54 Year
  Sex: Male

DRUGS (14)
  1. DUROGESIC [Suspect]
     Indication: BONE PAIN
     Route: 062
  2. DOXORUBICINE [Suspect]
     Indication: CHONDROSARCOMA
     Route: 042
  3. METHYLPREDNISOLONE [Suspect]
     Indication: CHONDROSARCOMA
     Route: 042
  4. METHYLPREDNISOLONE [Suspect]
     Indication: CHONDROSARCOMA
     Route: 042
  5. LYRICA [Suspect]
     Indication: BONE PAIN
     Dosage: 2 in the morning and 2 in the evening
     Route: 048
  6. SEVREDOL [Suspect]
     Indication: BONE PAIN
     Dosage: on demand
     Route: 048
  7. ZOPHREN [Concomitant]
     Indication: PROPHYLAXIS OF NAUSEA AND VOMITING
     Route: 042
     Dates: start: 20120711
  8. ZOPHREN [Concomitant]
     Indication: PROPHYLAXIS OF NAUSEA AND VOMITING
     Route: 042
     Dates: start: 20120620
  9. ZOPHREN [Concomitant]
     Indication: PROPHYLAXIS OF NAUSEA AND VOMITING
     Route: 042
     Dates: start: 20120801
  10. ZOPHREN [Concomitant]
     Indication: PROPHYLAXIS OF NAUSEA AND VOMITING
     Route: 042
     Dates: start: 20120822
  11. FLUCONAZOLE [Concomitant]
     Indication: PRODUCT USED FOR UNKNOWN INDICATION
     Route: 065
  12. INEXIUM [Concomitant]
     Indication: PRODUCT USED FOR UNKNOWN INDICATION
     Route: 065
  13. SERESTA [Concomitant]
     Indication: PRODUCT USED FOR UNKNOWN INDICATION
     Route: 065
  14. VITAMIN B1 B6 [Concomitant]
     Indication: PRODUCT USED FOR UNKNOWN INDICATION
     Route: 065

REACTIONS (1)
  - Pancreatitis acute [Recovering/Resolving]
